FAERS Safety Report 8989107 (Version 2)
Quarter: 2013Q1

REPORT INFORMATION
  Report Type: Spontaneous
  Country: IT (occurrence: IT)
  Receive Date: 20121228
  Receipt Date: 20130211
  Transmission Date: 20140127
  Serious: Yes (Hospitalization)
  Sender: FDA-Public Use
  Company Number: IT-ELI_LILLY_AND_COMPANY-IT201212006854

PATIENT
  Sex: Female

DRUGS (4)
  1. ZYPREXA [Suspect]
     Indication: BIPOLAR DISORDER
     Dosage: 37 DF, UNK
     Route: 048
     Dates: start: 20121215, end: 20121215
  2. LORAZEPAM [Concomitant]
     Indication: INSOMNIA
     Dosage: 20 GTT, SINGLE
     Route: 048
     Dates: start: 20121215, end: 20121215
  3. CITALOPRAM HYDROCHLORIDE [Concomitant]
     Dosage: 1 DF, UNKNOWN
     Route: 048
  4. CLONAZEPAM [Concomitant]
     Dosage: 1 GTT, UNKNOWN
     Route: 048

REACTIONS (2)
  - Toxicity to various agents [Unknown]
  - Overdose [Unknown]
